FAERS Safety Report 25558994 (Version 1)
Quarter: 2025Q3

REPORT INFORMATION
  Report Type: Spontaneous
  Country: GB (occurrence: GB)
  Receive Date: 20250715
  Receipt Date: 20250715
  Transmission Date: 20251020
  Serious: Yes (Other)
  Sender: MERCK SHARP & DOHME LLC
  Company Number: None

PATIENT
  Age: 77 Day
  Sex: Male
  Weight: 8 kg

DRUGS (2)
  1. MEASLES-MUMPS-RUBELLA VIRUS VACCINE [Suspect]
     Active Substance: MEASLES-MUMPS-RUBELLA VIRUS VACCINE
     Dates: start: 20250508
  2. STERILE DILUENT (WATER) [Suspect]
     Active Substance: WATER
     Dates: start: 20250508

REACTIONS (2)
  - Medication error [Unknown]
  - Scar [Not Recovered/Not Resolved]

NARRATIVE: CASE EVENT DATE: 20250508
